FAERS Safety Report 5798903-9 (Version None)
Quarter: 2008Q2

REPORT INFORMATION
  Report Type: 
  Country: None (occurrence: None)
  Receive Date: 20080630
  Receipt Date: 20080617
  Transmission Date: 20081010
  Serious: Yes (Hospitalization)
  Sender: FDA-Public Use
  Company Number: 2008S1010407

PATIENT
  Age: 45 Year
  Sex: Male

DRUGS (3)
  1. AZATHIOPRINE [Suspect]
     Indication: CROHN'S DISEASE
     Dosage: 150 MG; DAILY
  2. BUDESONIDE [Concomitant]
  3. SULFASALAZINE [Concomitant]

REACTIONS (11)
  - ANAEMIA MACROCYTIC [None]
  - GASTRIC VARICES HAEMORRHAGE [None]
  - HEPATIC FIBROSIS [None]
  - HEPATITIS [None]
  - HYPERBILIRUBINAEMIA [None]
  - MELAENA [None]
  - NODULAR REGENERATIVE HYPERPLASIA [None]
  - PORTAL HYPERTENSION [None]
  - SPLENOMEGALY [None]
  - THROMBOCYTOPENIA [None]
  - VARICES OESOPHAGEAL [None]
